FAERS Safety Report 16437196 (Version 4)
Quarter: 2020Q3

REPORT INFORMATION
  Report Type: Spontaneous
  Country: JP (occurrence: JP)
  Receive Date: 20190615
  Receipt Date: 20200902
  Transmission Date: 20201102
  Serious: Yes (Death, Other)
  Sender: FDA-Public Use
  Company Number: JP-AUROBINDO-AUR-APL-2019-033153

PATIENT
  Age: 75 Year
  Sex: Male

DRUGS (8)
  1. PRALATREXATE INJECTION [Suspect]
     Active Substance: PRALATREXATE
     Indication: CUTANEOUS T-CELL LYMPHOMA
     Dosage: 30 MILLIGRAM/SQ. METER, DAILY FOR 3 MIN
     Route: 042
     Dates: start: 201709
  2. MUNDESINE [Suspect]
     Active Substance: FORODESINE HYDROCHLORIDE
     Indication: CUTANEOUS T-CELL LYMPHOMA
     Dosage: 600 MILLIGRAM, DAILY
     Route: 048
  3. VITAMIN B12 [Concomitant]
     Active Substance: CYANOCOBALAMIN
     Indication: PROPHYLAXIS
  4. FOLIC ACID. [Concomitant]
     Active Substance: FOLIC ACID
     Indication: CUTANEOUS T-CELL LYMPHOMA
     Dosage: UNK
  5. PANVITAN [Concomitant]
     Active Substance: VITAMINS
     Indication: PROPHYLAXIS
     Dosage: WAS INITIATED BEFORE 10 DAYS BEFORE ADMINISTRATION OF DIFOLTA INJECTION
     Route: 065
  6. CYANOCOBALAMIN. [Concomitant]
     Active Substance: CYANOCOBALAMIN
     Indication: PROPHYLAXIS
     Dosage: ONCE EVERY 8 WEEKS
     Route: 065
  7. PRALATREXATE INJECTION [Suspect]
     Active Substance: PRALATREXATE
     Dosage: 20 MILLIGRAM/SQ. METER, DAILY
     Route: 042
  8. VITAMIN B12 [Concomitant]
     Active Substance: CYANOCOBALAMIN
     Indication: CUTANEOUS T-CELL LYMPHOMA
     Dosage: UNK, ONCE EVERY 8 WEEKS
     Route: 065

REACTIONS (9)
  - Blastic plasmacytoid dendritic cell neoplasia [Unknown]
  - Platelet count decreased [Unknown]
  - Rash [Unknown]
  - Mucosal disorder [Recovering/Resolving]
  - Diarrhoea [Unknown]
  - Traumatic intracranial haemorrhage [Fatal]
  - Fall [Unknown]
  - Stomatitis [Unknown]
  - Malignant neoplasm progression [Unknown]
